FAERS Safety Report 5836044-2 (Version None)
Quarter: 2008Q3

REPORT INFORMATION
  Report Type: 
  Country: None (occurrence: None)
  Receive Date: 20080806
  Receipt Date: 20080725
  Transmission Date: 20090109
  Serious: Yes (Other)
  Sender: FDA-Public Use
  Company Number: GB-PFIZER INC-2008062979

PATIENT
  Age: 66 Year
  Sex: Female

DRUGS (11)
  1. EXEMESTANE [Suspect]
     Indication: BREAST CANCER
     Route: 048
     Dates: start: 20080603, end: 20080610
  2. ATENOLOL [Concomitant]
  3. CEPHALEXIN [Concomitant]
     Route: 048
  4. INDAPAMIDE [Concomitant]
  5. LORAZEPAM [Concomitant]
  6. METRONIDAZOLE HCL [Concomitant]
     Route: 048
  7. OMEPRAZOLE [Concomitant]
  8. SIMVASTATIN [Concomitant]
  9. ACETAMINOPHEN [Concomitant]
  10. TAMOXIFEN CITRATE [Concomitant]
     Route: 048
     Dates: start: 20040101, end: 20080605
  11. VENLAFAXINE HYDROCHLORIDE [Concomitant]

REACTIONS (3)
  - ABDOMINAL PAIN [None]
  - CHOLANGITIS [None]
  - HEPATITIS ACUTE [None]
